FAERS Safety Report 19312119 (Version 1)
Quarter: 2021Q2

REPORT INFORMATION
  Report Type: Spontaneous
  Country: PL (occurrence: PL)
  Receive Date: 20210527
  Receipt Date: 20210527
  Transmission Date: 20210717
  Serious: Yes (Other)
  Sender: FDA-Public Use
  Company Number: PL-TEVA-2021-PL-1914502

PATIENT
  Age: 58 Year
  Sex: Female
  Weight: 78 kg

DRUGS (4)
  1. LEUCOVORIN. [Suspect]
     Active Substance: LEUCOVORIN
     Indication: COLON CANCER
     Dosage: 390MILLIGRAM
     Route: 042
     Dates: start: 20200127, end: 20200129
  2. 5?FU [Suspect]
     Active Substance: FLUOROURACIL
     Indication: COLON CANCER
     Dosage: 780MILLIGRAM
     Route: 040
     Dates: start: 20200127, end: 20200129
  3. 5?FU [Suspect]
     Active Substance: FLUOROURACIL
     Dosage: 2340MILLIGRAM
     Route: 041
     Dates: start: 20200127, end: 20200129
  4. OXALIPLATIN. [Suspect]
     Active Substance: OXALIPLATIN
     Indication: COLON CANCER
     Dosage: 165.7MILLIGRAM
     Route: 042
     Dates: start: 20200127, end: 20200129

REACTIONS (1)
  - Neutropenia [Unknown]

NARRATIVE: CASE EVENT DATE: 20200210
